FAERS Safety Report 4909359-X (Version None)
Quarter: 2006Q1

REPORT INFORMATION
  Report Type: 
  Country: None (occurrence: None)
  Receive Date: 20060213
  Receipt Date: 20060202
  Transmission Date: 20060701
  Serious: Yes (Death, Hospitalization)
  Sender: FDA-Public Use
  Company Number: CH-GLAXOSMITHKLINE-B0409078A

PATIENT
  Age: 67 Year
  Sex: Female

DRUGS (13)
  1. AUGMENTIN '125' [Suspect]
     Indication: LOWER RESPIRATORY TRACT INFECTION
     Dosage: 625MG TWICE PER DAY
     Route: 048
     Dates: start: 20051125, end: 20051128
  2. ACETAMINOPHEN [Suspect]
     Indication: DRUG USE FOR UNKNOWN INDICATION
     Route: 048
     Dates: start: 20050101, end: 20051130
  3. MARCOUMAR [Suspect]
     Indication: DRUG USE FOR UNKNOWN INDICATION
     Dosage: 3MG AS REQUIRED
     Route: 048
  4. BELOC [Concomitant]
     Indication: DRUG USE FOR UNKNOWN INDICATION
     Dosage: 25MG PER DAY
     Route: 048
  5. COZAAR [Concomitant]
     Indication: DRUG USE FOR UNKNOWN INDICATION
     Dosage: 50MG SEE DOSAGE TEXT
     Route: 048
  6. CALCIUM ACETATE [Concomitant]
     Indication: DRUG USE FOR UNKNOWN INDICATION
     Dosage: 500MG THREE TIMES PER DAY
     Route: 048
  7. RENAGEL [Concomitant]
     Indication: DRUG USE FOR UNKNOWN INDICATION
     Dosage: 800MG FOUR TIMES PER DAY
     Route: 048
  8. CINACALCET HYDROCHLORIDE [Concomitant]
     Indication: DRUG USE FOR UNKNOWN INDICATION
     Route: 048
  9. FOSAMAX [Concomitant]
     Indication: DRUG USE FOR UNKNOWN INDICATION
     Dosage: 70MG SEE DOSAGE TEXT
     Route: 048
  10. ASCORBIC ACID + FOLIC ACID + VITAMIN B [Concomitant]
     Indication: DRUG USE FOR UNKNOWN INDICATION
     Dosage: 2U PER DAY
     Route: 048
  11. PREDNISONE [Concomitant]
     Indication: DRUG USE FOR UNKNOWN INDICATION
     Dosage: 5MG PER DAY
     Route: 048
  12. ROCALTROL [Concomitant]
     Indication: DRUG USE FOR UNKNOWN INDICATION
     Dosage: .25MCG PER DAY
     Route: 048
  13. EUTHYROX [Concomitant]
     Dosage: .075MG PER DAY
     Route: 048

REACTIONS (14)
  - ARTHRALGIA [None]
  - COAGULATION TIME PROLONGED [None]
  - DYSPNOEA [None]
  - GASTROINTESTINAL HAEMORRHAGE [None]
  - HAEMATEMESIS [None]
  - HAEMODYNAMIC INSTABILITY [None]
  - HEPATIC FAILURE [None]
  - HYPERBILIRUBINAEMIA [None]
  - HYPOTENSION [None]
  - MELAENA [None]
  - PYREXIA [None]
  - SEDATION [None]
  - SOMNOLENCE [None]
  - TRANSAMINASES INCREASED [None]
